FAERS Safety Report 17926791 (Version 1)
Quarter: 2020Q2

REPORT INFORMATION
  Report Type: Spontaneous
  Country: CN (occurrence: CN)
  Receive Date: 20200623
  Receipt Date: 20200623
  Transmission Date: 20200714
  Serious: Yes (Other)
  Sender: FDA-Public Use
  Company Number: CN-ROCHE-2623122

PATIENT
  Age: 51 Year
  Sex: Female

DRUGS (13)
  1. XELODA [Suspect]
     Active Substance: CAPECITABINE
     Dosage: 6TH - 12TH CYCLE
     Route: 065
     Dates: start: 20180523, end: 20180928
  2. HERCEPTIN [Suspect]
     Active Substance: TRASTUZUMAB
     Dosage: 5 CYCLES
     Route: 065
     Dates: start: 20180110, end: 20180502
  3. HERCEPTIN [Suspect]
     Active Substance: TRASTUZUMAB
     Indication: ADENOCARCINOMA GASTRIC
     Dosage: 5 CYCLES, 440 MG FOR FIRST DOSE AND 360 MG FOR OTHER DOSE
     Route: 065
     Dates: start: 20170911, end: 20171218
  4. HERCEPTIN [Suspect]
     Active Substance: TRASTUZUMAB
     Dosage: 6TH - 12TH CYCLE,
     Route: 065
     Dates: start: 20180523, end: 20180928
  5. XELODA [Suspect]
     Active Substance: CAPECITABINE
     Indication: ADENOCARCINOMA GASTRIC
     Dosage: 5 CYCLES
     Route: 048
     Dates: start: 20170911, end: 20171218
  6. PACLITAXEL LIPOSOME [Concomitant]
     Active Substance: PACLITAXEL
     Dosage: THREE CYCLES
     Route: 041
     Dates: start: 20190717, end: 20190907
  7. APATINIB [Concomitant]
     Active Substance: APATINIB
     Dosage: THREE CYCLES
     Route: 048
     Dates: start: 20190717, end: 20190907
  8. OXALIPLATIN. [Concomitant]
     Active Substance: OXALIPLATIN
     Indication: ADENOCARCINOMA GASTRIC
     Route: 065
     Dates: start: 20170911, end: 20171218
  9. HERCEPTIN [Suspect]
     Active Substance: TRASTUZUMAB
     Dosage: 13-22 CYCLES
     Route: 065
     Dates: start: 20181019, end: 20190928
  10. XELODA [Suspect]
     Active Substance: CAPECITABINE
     Dosage: 5 CYCLES
     Route: 065
     Dates: start: 20180110, end: 20180502
  11. ZOLEDRONIC ACID [Concomitant]
     Active Substance: ZOLEDRONIC ACID
  12. PACLITAXEL LIPOSOME [Concomitant]
     Active Substance: PACLITAXEL
     Indication: ADENOCARCINOMA GASTRIC
     Route: 041
     Dates: start: 20190626
  13. APATINIB [Concomitant]
     Active Substance: APATINIB
     Indication: ADENOCARCINOMA GASTRIC
     Route: 048
     Dates: start: 20190626

REACTIONS (5)
  - Obstruction gastric [Unknown]
  - Bile duct obstruction [Unknown]
  - Abdominal distension [Unknown]
  - Biliary dilatation [Unknown]
  - Palmar-plantar erythrodysaesthesia syndrome [Unknown]

NARRATIVE: CASE EVENT DATE: 20180523
